FAERS Safety Report 16180091 (Version 1)
Quarter: 2019Q2

REPORT INFORMATION
  Report Type: Spontaneous
  Country: US (occurrence: US)
  Receive Date: 20190409
  Receipt Date: 20190409
  Transmission Date: 20190711
  Serious: No
  Sender: FDA-Public Use
  Company Number: None

PATIENT
  Age: 46 Year
  Sex: Female
  Weight: 80.1 kg

DRUGS (1)
  1. CHLORHEXIDINE GLUCONATE 0.02% [Suspect]
     Active Substance: CHLORHEXIDINE GLUCONATE
     Indication: ACANTHAMOEBA KERATITIS
     Dosage: ??          QUANTITY:10 ML;?
     Route: 047
     Dates: start: 20190406, end: 20190408

REACTIONS (4)
  - Product formulation issue [None]
  - Eye irritation [None]
  - Pain [None]
  - Product dispensing issue [None]

NARRATIVE: CASE EVENT DATE: 20190406
